FAERS Safety Report 19654562 (Version 3)
Quarter: 2022Q3

REPORT INFORMATION
  Report Type: Spontaneous
  Country: CA (occurrence: CA)
  Receive Date: 20210804
  Receipt Date: 20220901
  Transmission Date: 20221026
  Serious: Yes (Other)
  Sender: FDA-Public Use
  Company Number: CA-SA-SAC20210729000497

PATIENT
  Sex: Female

DRUGS (11)
  1. LEFLUNOMIDE [Suspect]
     Active Substance: LEFLUNOMIDE
     Indication: Product used for unknown indication
     Dosage: 20 MG, QD
     Route: 065
  2. LEFLUNOMIDE [Suspect]
     Active Substance: LEFLUNOMIDE
  3. METHOTREXATE [Suspect]
     Active Substance: METHOTREXATE
     Indication: Product used for unknown indication
     Dosage: 3 DF
     Route: 058
  4. METHOTREXATE [Suspect]
     Active Substance: METHOTREXATE
     Indication: Psoriasis
  5. CELECOXIB\LIDOCAINE\MENTHOL [Concomitant]
     Active Substance: CELECOXIB\LIDOCAINE\MENTHOL
     Indication: Product used for unknown indication
     Dosage: 200 MG, BID
     Route: 048
  6. COLCHICINE;PROBENECID [Concomitant]
     Indication: Product used for unknown indication
     Dosage: UNK
     Route: 065
  7. COLCHICINE;PROBENECID [Concomitant]
     Indication: Gout
  8. FLUOXETINE [Concomitant]
     Active Substance: FLUOXETINE HYDROCHLORIDE
     Indication: Product used for unknown indication
     Dosage: UNK
     Route: 065
  9. FOLIC ACID [Concomitant]
     Active Substance: FOLIC ACID
     Indication: Product used for unknown indication
     Dosage: 5 MG, QD
     Route: 048
  10. MORPHINE [Concomitant]
     Active Substance: MORPHINE
     Indication: Product used for unknown indication
     Dosage: 5 MG
     Route: 048
  11. ERGOCALCIFEROL [Concomitant]
     Active Substance: ERGOCALCIFEROL
     Indication: Product used for unknown indication
     Dosage: UNK
     Route: 065

REACTIONS (41)
  - Bone erosion [Unknown]
  - Dactylitis [Unknown]
  - Decreased appetite [Unknown]
  - Gait disturbance [Unknown]
  - Gastrooesophageal reflux disease [Unknown]
  - Gout [Unknown]
  - Hyperaemia [Unknown]
  - Hyperplasia [Unknown]
  - Menstruation normal [Unknown]
  - Metatarsalgia [Unknown]
  - Musculoskeletal stiffness [Unknown]
  - Nail dystrophy [Unknown]
  - Nail pitting [Unknown]
  - Oedema [Unknown]
  - Pain [Unknown]
  - Pain in extremity [Unknown]
  - Post-traumatic stress disorder [Unknown]
  - Premature menopause [Unknown]
  - Psoriasis [Unknown]
  - Skin lesion [Unknown]
  - Synovitis [Unknown]
  - Ulcer [Unknown]
  - Fatigue [Unknown]
  - Arthritis [Unknown]
  - Asthenia [Unknown]
  - Diarrhoea [Unknown]
  - Condition aggravated [Unknown]
  - Abdominal pain [Unknown]
  - Joint swelling [Unknown]
  - Arthralgia [Unknown]
  - Nausea [Unknown]
  - Headache [Unknown]
  - Psoriatic arthropathy [Unknown]
  - Rash [Unknown]
  - Tenosynovitis [Unknown]
  - Weight decreased [Unknown]
  - Arthropathy [Unknown]
  - Skin erosion [Unknown]
  - Stress [Unknown]
  - Menopausal symptoms [Unknown]
  - Foot deformity [Unknown]
